FAERS Safety Report 18346774 (Version 2)
Quarter: 2021Q3

REPORT INFORMATION
  Report Type: Report from Study
  Country: US (occurrence: US)
  Receive Date: 20201005
  Receipt Date: 20210722
  Transmission Date: 20211014
  Serious: Yes (Disabling, Other)
  Sender: FDA-Public Use
  Company Number: US-JAZZ-2020-US-012723

PATIENT
  Age: 73 Year
  Sex: Male

DRUGS (1)
  1. VYXEOS [Suspect]
     Active Substance: CYTARABINE\DAUNORUBICIN
     Indication: ACUTE MYELOID LEUKAEMIA
     Dosage: UNKNOWN DOSE
     Route: 065
     Dates: end: 202006

REACTIONS (5)
  - Disability [Not Recovered/Not Resolved]
  - Malaise [Unknown]
  - Muscular weakness [Unknown]
  - Hypoaesthesia [Unknown]
  - Alopecia [Unknown]
